FAERS Safety Report 7247386-0 (Version None)
Quarter: 2011Q1

REPORT INFORMATION
  Report Type: 
  Country: None (occurrence: None)
  Receive Date: 20110127
  Receipt Date: 20110117
  Transmission Date: 20110831
  Serious: Yes (Congenital Anomaly)
  Sender: FDA-Public Use
  Company Number: US-GILEAD-2010-0028641

PATIENT
  Sex: Male

DRUGS (11)
  1. VIREAD [Suspect]
     Indication: HIV INFECTION
     Route: 064
     Dates: start: 20091015
  2. NORVIR [Concomitant]
     Indication: HIV INFECTION
     Route: 064
     Dates: end: 20090728
  3. ISENTRESS [Concomitant]
     Indication: HIV INFECTION
     Dates: start: 20091217
  4. NORVIR [Concomitant]
     Route: 064
     Dates: start: 20091015
  5. TRUVADA [Suspect]
     Indication: HIV INFECTION
     Route: 064
     Dates: end: 20090728
  6. KALETRA [Concomitant]
     Indication: HIV INFECTION
     Route: 064
     Dates: start: 20090728, end: 20090924
  7. EPIVIR [Concomitant]
     Indication: HIV INFECTION
     Route: 064
     Dates: start: 20090924
  8. LEXIVA [Concomitant]
     Indication: HIV INFECTION
     Route: 064
     Dates: start: 20091015, end: 20091217
  9. REYATAZ [Concomitant]
     Indication: HIV INFECTION
     Route: 064
     Dates: end: 20090728
  10. COMBIVIR [Concomitant]
     Indication: HIV INFECTION
     Route: 064
     Dates: start: 20090728, end: 20090924
  11. REYATAZ [Concomitant]
     Route: 064
     Dates: start: 20090924, end: 20091015

REACTIONS (2)
  - ADRENOGENITAL SYNDROME [None]
  - PYELOCALIECTASIS [None]
